FAERS Safety Report 19814580 (Version 1)
Quarter: 2021Q3

REPORT INFORMATION
  Report Type: Spontaneous
  Country: US (occurrence: US)
  Receive Date: 20210910
  Receipt Date: 20210910
  Transmission Date: 20211014
  Serious: No
  Sender: FDA-Public Use
  Company Number: None

PATIENT
  Sex: Female

DRUGS (8)
  1. CYMBALTA, DICYCLOMINE, DOCUSATE, DULOEXTINE, EPINEPHRINE, FIRAZYR [Concomitant]
  2. PROMETHAZINE, RICOLALMN, ROBITUSSIN, SALINE FLUSHING [Concomitant]
  3. ALBUTEROL, BENTYL, CALCIUM, CLOTRIMAZOLE [Concomitant]
  4. SIMVASTATIN, SPACER CHAMB, SUDAFED [Concomitant]
  5. MS CONTTINI, OMPERAZOLE, OXYCODONE, PHENEGRAN, [Concomitant]
  6. ICATIBANT [Suspect]
     Active Substance: ICATIBANT ACETATE
     Indication: COMPLEMENT FACTOR ABNORMAL
     Dosage: ?          OTHER FREQUENCY:ONSET OF HAE ATTAC;?
     Route: 058
     Dates: start: 20210430
  7. TAKHZYRO, VITAMIN D?3 [Concomitant]
  8. FLUOCINOLONE, HALLS COUGH, IMITREX, LEVOTHYROXIN [Concomitant]

REACTIONS (1)
  - Condition aggravated [None]
